FAERS Safety Report 5201935-2 (Version None)
Quarter: 2007Q1

REPORT INFORMATION
  Report Type: 
  Country: None (occurrence: None)
  Receive Date: 20070103
  Receipt Date: 20061226
  Transmission Date: 20070707
  Serious: Yes (Hospitalization)
  Sender: FDA-Public Use
  Company Number: HQWYE076502JAN07

PATIENT
  Age: 35 Year
  Sex: Male

DRUGS (3)
  1. CORDARONE [Suspect]
     Indication: ARRHYTHMIA
     Dosage: SEE IMAGE
     Route: 048
     Dates: start: 20061001, end: 20060101
  2. CORDARONE [Suspect]
     Indication: ARRHYTHMIA
     Dosage: SEE IMAGE
     Route: 048
     Dates: start: 20061113
  3. . [Suspect]

REACTIONS (2)
  - DRY SKIN [None]
  - RASH PRURITIC [None]
